FAERS Safety Report 5238623-2 (Version None)
Quarter: 2007Q1

REPORT INFORMATION
  Report Type: 
  Country: None (occurrence: None)
  Receive Date: 20070215
  Receipt Date: 20070205
  Transmission Date: 20070707
  Serious: Yes (Other)
  Sender: FDA-Public Use
  Company Number: US-ELI_LILLY_AND_COMPANY-US200702000951

PATIENT
  Sex: Female

DRUGS (5)
  1. CYMBALTA [Suspect]
     Dosage: 30 MG, UNK
     Dates: start: 20070116, end: 20070116
  2. WELLBUTRIN [Concomitant]
     Dosage: 150 MG, UNK
  3. VITAMINS [Concomitant]
  4. MINERALS NOS [Concomitant]
  5. PROGESTERONE [Concomitant]

REACTIONS (8)
  - AGITATION [None]
  - ANXIETY [None]
  - BLOOD PRESSURE INCREASED [None]
  - DIARRHOEA [None]
  - FEELING ABNORMAL [None]
  - MALAISE [None]
  - NAUSEA [None]
  - SEROTONIN SYNDROME [None]
